FAERS Safety Report 6146248-X (Version None)
Quarter: 2009Q2

REPORT INFORMATION
  Report Type: 
  Country: None (occurrence: None)
  Receive Date: 20090403
  Receipt Date: 20090119
  Transmission Date: 20091009
  Serious: Yes (Life-Threatening, Other)
  Sender: FDA-Public Use
  Company Number: 2009-003

PATIENT
  Age: 18 Year
  Sex: Male
  Weight: 51.5 kg

DRUGS (1)
  1. SODIUM BICARBONATE [Suspect]
     Dosage: INTRAVENOUS
     Route: 042

REACTIONS (1)
  - DEVICE MALFUNCTION [None]
